FAERS Safety Report 8224127-1 (Version None)
Quarter: 2012Q1

REPORT INFORMATION
  Report Type: 
  Country: None (occurrence: None)
  Receive Date: 20120307
  Receipt Date: 20110526
  Transmission Date: 20120608
  Serious: No
  Sender: FDA-Public Use
  Company Number: PHHY2011US05247

PATIENT
  Age: 16 Month
  Sex: Male

DRUGS (3)
  1. AFINITOR [Suspect]
     Indication: TUBEROUS SCLEROSIS
     Dosage: 2.5 MG DAILY, ORAL
     Route: 048
     Dates: start: 20101215
  2. SABRILEX (VIGABATRIN) [Concomitant]
  3. LOPERAMIDE [Concomitant]

REACTIONS (5)
  - BLISTER [None]
  - VIRAL TEST POSITIVE [None]
  - DIARRHOEA [None]
  - PYREXIA [None]
  - MOUTH ULCERATION [None]
